FAERS Safety Report 16720608 (Version 7)
Quarter: 2019Q3

REPORT INFORMATION
  Report Type: Spontaneous
  Country: TW (occurrence: TW)
  Receive Date: 20190820
  Receipt Date: 20190926
  Transmission Date: 20191005
  Serious: Yes (Life-Threatening, Hospitalization, Other)
  Sender: FDA-Public Use
  Company Number: TW-PFIZER INC-2019355601

PATIENT
  Age: 77 Year
  Sex: Male
  Weight: 58 kg

DRUGS (4)
  1. BISOPROLOL [Suspect]
     Active Substance: BISOPROLOL
     Indication: ATRIAL FIBRILLATION
     Dosage: 1.25 MG, 1X/DAY
     Route: 048
  2. EDOXABAN [Interacting]
     Active Substance: EDOXABAN TOSYLATE
     Indication: CEREBROVASCULAR ACCIDENT PROPHYLAXIS
     Dosage: 30 MG, 1X/DAY (LOW DOSE,DAILY)
     Route: 048
     Dates: start: 20180108, end: 20180114
  3. AMIODARONE HCL [Suspect]
     Active Substance: AMIODARONE HYDROCHLORIDE
     Indication: ATRIAL FIBRILLATION
     Dosage: 200 MG, 2X/DAY
     Route: 048
     Dates: start: 20180108, end: 20180114
  4. EDOXABAN [Interacting]
     Active Substance: EDOXABAN TOSYLATE
     Indication: ANTICOAGULANT THERAPY

REACTIONS (14)
  - Drug interaction [Recovered/Resolved]
  - Drug level increased [Recovered/Resolved]
  - Hyperhidrosis [Recovered/Resolved]
  - International normalised ratio increased [Recovered/Resolved]
  - Acute kidney injury [Recovered/Resolved]
  - Pericardial effusion [Recovered/Resolved]
  - Hepatitis acute [Recovered/Resolved]
  - Ejection fraction abnormal [Recovered/Resolved]
  - Haemothorax [Recovered/Resolved]
  - Jugular vein distension [Recovered/Resolved]
  - Atrial fibrillation [Recovered/Resolved]
  - Pericardial haemorrhage [Recovered/Resolved]
  - Hypotension [Recovered/Resolved]
  - Anaemia [Recovered/Resolved]

NARRATIVE: CASE EVENT DATE: 201801
